FAERS Safety Report 18622859 (Version 1)
Quarter: 2020Q4

REPORT INFORMATION
  Report Type: Spontaneous
  Country: US (occurrence: US)
  Receive Date: 20201216
  Receipt Date: 20201216
  Transmission Date: 20210114
  Serious: No
  Sender: FDA-Public Use
  Company Number: US-ASTRAZENECA-2020SF52328

PATIENT
  Sex: Male

DRUGS (3)
  1. LYNPARZA [Suspect]
     Active Substance: OLAPARIB
     Dosage: 1 DF, TWICE DAILY ONE IN THE MORNING, ONE IN THE EVENING
     Route: 065
     Dates: start: 202010
  2. XTANDI [Suspect]
     Active Substance: ENZALUTAMIDE
     Indication: PROSTATE CANCER
     Route: 048
  3. LYNPARZA [Suspect]
     Active Substance: OLAPARIB
     Route: 065

REACTIONS (5)
  - Dysgeusia [Recovering/Resolving]
  - Asthenia [Unknown]
  - Bone pain [Recovering/Resolving]
  - Feeding disorder [Recovering/Resolving]
  - Fatigue [Unknown]
